FAERS Safety Report 7163900-8 (Version None)
Quarter: 2010Q4

REPORT INFORMATION
  Report Type: 
  Country: None (occurrence: None)
  Receive Date: 20101210
  Receipt Date: 20101210
  Transmission Date: 20110411
  Serious: Yes (Hospitalization)
  Sender: FDA-Public Use
  Company Number: None

PATIENT
  Sex: Female
  Weight: 57.5 kg

DRUGS (6)
  1. SOLIRIS [Suspect]
     Indication: PROPHYLAXIS AGAINST TRANSPLANT REJECTION
     Dosage: 1200 MG ONCE IV ; 900 MG 5 TIMES IV
     Route: 042
     Dates: start: 20101006
  2. SOLIRIS [Suspect]
     Indication: PROPHYLAXIS AGAINST TRANSPLANT REJECTION
     Dosage: 1200 MG ONCE IV ; 900 MG 5 TIMES IV
     Route: 042
     Dates: start: 20101007
  3. SOLIRIS [Suspect]
     Indication: PROPHYLAXIS AGAINST TRANSPLANT REJECTION
     Dosage: 1200 MG ONCE IV ; 900 MG 5 TIMES IV
     Route: 042
     Dates: start: 20101013
  4. SOLIRIS [Suspect]
     Indication: PROPHYLAXIS AGAINST TRANSPLANT REJECTION
     Dosage: 1200 MG ONCE IV ; 900 MG 5 TIMES IV
     Route: 042
     Dates: start: 20101020
  5. SOLIRIS [Suspect]
     Indication: PROPHYLAXIS AGAINST TRANSPLANT REJECTION
     Dosage: 1200 MG ONCE IV ; 900 MG 5 TIMES IV
     Route: 042
     Dates: start: 20101027
  6. SOLIRIS [Suspect]
     Indication: PROPHYLAXIS AGAINST TRANSPLANT REJECTION
     Dosage: 1200 MG ONCE IV ; 900 MG 5 TIMES IV
     Route: 042
     Dates: start: 20101103

REACTIONS (4)
  - ABDOMINAL DISCOMFORT [None]
  - HAEMOGLOBIN DECREASED [None]
  - MUSCULOSKELETAL DISCOMFORT [None]
  - POST PROCEDURAL COMPLICATION [None]
